FAERS Safety Report 17070528 (Version 1)
Quarter: 2019Q4

REPORT INFORMATION
  Report Type: Spontaneous
  Country: CN (occurrence: CN)
  Receive Date: 20191125
  Receipt Date: 20191125
  Transmission Date: 20200122
  Serious: Yes (Hospitalization, Other)
  Sender: FDA-Public Use
  Company Number: CN-PFIZER INC-2019504016

PATIENT
  Age: 54 Year
  Sex: Male
  Weight: 56.5 kg

DRUGS (9)
  1. CORDARONE [Suspect]
     Active Substance: AMIODARONE HYDROCHLORIDE
     Indication: CARDIAC DISORDER
  2. CORDARONE [Suspect]
     Active Substance: AMIODARONE HYDROCHLORIDE
     Indication: ATRIAL FIBRILLATION
  3. HYDROCHLOROTHIAZIDE. [Concomitant]
     Active Substance: HYDROCHLOROTHIAZIDE
     Dosage: 50 MG, 1X/DAY
     Route: 048
     Dates: start: 20191007
  4. ASPIRIN [ACETYLSALICYLIC ACID] [Concomitant]
     Active Substance: ASPIRIN
     Dosage: 100 MG, 1X/DAY
     Route: 048
     Dates: start: 20191007
  5. CORDARONE [Suspect]
     Active Substance: AMIODARONE HYDROCHLORIDE
     Indication: CARDIAC VALVE DISEASE
     Dosage: 0.2 G, 1X/DAY
     Route: 048
     Dates: start: 20191020, end: 20191108
  6. CORDARONE [Suspect]
     Active Substance: AMIODARONE HYDROCHLORIDE
     Indication: MITRAL VALVE PROLAPSE
  7. WARFARIN SODIUM. [Concomitant]
     Active Substance: WARFARIN SODIUM
     Indication: HEART VALVE OPERATION
     Dosage: 2.5 MG, 1X/DAY
     Route: 048
     Dates: start: 20191007, end: 20191113
  8. DIGOXIN. [Concomitant]
     Active Substance: DIGOXIN
     Dosage: 0.125 MG, 1X/DAY
     Route: 048
     Dates: start: 20191007
  9. CORDARONE [Suspect]
     Active Substance: AMIODARONE HYDROCHLORIDE
     Indication: ARTERIOSCLEROSIS CORONARY ARTERY

REACTIONS (19)
  - Neutrophil percentage increased [Unknown]
  - Haematocrit decreased [Unknown]
  - Blood glucose increased [Unknown]
  - Streptococcus test positive [Unknown]
  - Rheumatoid factor positive [Unknown]
  - Erythema [Recovering/Resolving]
  - Hepatic function abnormal [Unknown]
  - Activated partial thromboplastin time prolonged [Unknown]
  - Red blood cell sedimentation rate abnormal [Unknown]
  - International normalised ratio increased [Unknown]
  - Renal impairment [Unknown]
  - Red blood cell count decreased [Unknown]
  - Haemoglobin decreased [Unknown]
  - Blood albumin decreased [Unknown]
  - Pruritus [Unknown]
  - C-reactive protein abnormal [Unknown]
  - Rash [Recovering/Resolving]
  - Blood potassium decreased [Unknown]
  - Prothrombin time prolonged [Unknown]

NARRATIVE: CASE EVENT DATE: 201911
